FAERS Safety Report 8570397-X (Version None)
Quarter: 2012Q3

REPORT INFORMATION
  Report Type: 
  Country: None (occurrence: None)
  Receive Date: 20120803
  Receipt Date: 20120725
  Transmission Date: 20120928
  Serious: Yes (Other)
  Sender: FDA-Public Use
  Company Number: US-ASTRAZENECA-2010SE46878

PATIENT
  Age: 58 Year
  Sex: Female

DRUGS (10)
  1. NOLVADEX [Suspect]
     Route: 048
  2. SEROQUEL [Suspect]
     Indication: BIPOLAR DISORDER
     Route: 048
     Dates: start: 19980101
  3. SEROQUEL [Suspect]
     Route: 048
  4. WELLBUTRIN [Concomitant]
     Dosage: 300 DAILY
     Route: 048
  5. LAMICTAL [Concomitant]
     Dosage: 400 DAILY
     Route: 048
  6. KLONOPIN [Concomitant]
     Dosage: 1.5 DAILY
     Route: 048
  7. ARIMIDEX [Suspect]
     Indication: BREAST CANCER
     Route: 048
     Dates: start: 20090101
  8. SEROQUEL [Suspect]
     Route: 048
     Dates: start: 20000101
  9. SEROQUEL [Suspect]
     Route: 048
     Dates: start: 20051202
  10. CLONAZEPAM [Concomitant]

REACTIONS (7)
  - BREAST CANCER FEMALE [None]
  - STRESS [None]
  - TENDONITIS [None]
  - DYSPHONIA [None]
  - INTENTIONAL DRUG MISUSE [None]
  - NEOPLASM MALIGNANT [None]
  - FALL [None]
